FAERS Safety Report 5883515-9 (Version None)
Quarter: 2008Q3

REPORT INFORMATION
  Report Type: 
  Country: None (occurrence: None)
  Receive Date: 20080912
  Receipt Date: 20080912
  Transmission Date: 20090109
  Serious: Yes (Other)
  Sender: FDA-Public Use
  Company Number: None

PATIENT
  Age: 56 Year
  Sex: Female
  Weight: 86.1834 kg

DRUGS (2)
  1. LAMOTRIGINE [Suspect]
     Indication: BIPOLAR II DISORDER
     Dosage: 1 IN A.M., 1.5 IN P.M.  BID  PO
     Route: 048
     Dates: start: 20080812, end: 20080908
  2. LAMOTRIGINE [Suspect]
     Indication: DEPRESSION
     Dosage: 1 IN A.M., 1.5 IN P.M.  BID  PO
     Route: 048
     Dates: start: 20080812, end: 20080908

REACTIONS (5)
  - HYPERSOMNIA [None]
  - MAJOR DEPRESSION [None]
  - SUICIDAL IDEATION [None]
  - THERAPEUTIC RESPONSE UNEXPECTED WITH DRUG SUBSTITUTION [None]
  - THINKING ABNORMAL [None]
